FAERS Safety Report 7292553-3 (Version None)
Quarter: 2011Q1

REPORT INFORMATION
  Report Type: 
  Country: None (occurrence: None)
  Receive Date: 20110215
  Receipt Date: 20101022
  Transmission Date: 20110831
  Serious: No
  Sender: FDA-Public Use
  Company Number: US-BAYER-201022867BCC

PATIENT
  Sex: Male
  Weight: 12.727 kg

DRUGS (1)
  1. ALEVE [Suspect]
     Dosage: 2 DF, ONCE
     Route: 048
     Dates: start: 20101021, end: 20101021

REACTIONS (1)
  - NO ADVERSE EVENT [None]
